FAERS Safety Report 12244274 (Version 1)
Quarter: 2016Q2

REPORT INFORMATION
  Report Type: Spontaneous
  Country: US (occurrence: US)
  Receive Date: 20160407
  Receipt Date: 20160407
  Transmission Date: 20160815
  Serious: Yes (Hospitalization, Other)
  Sender: FDA-Public Use
  Company Number: US-ASTRAZENECA-2016SE34931

PATIENT
  Age: 55 Year
  Sex: Male
  Weight: 136.1 kg

DRUGS (17)
  1. LYRICA [Suspect]
     Active Substance: PREGABALIN
     Route: 065
     Dates: start: 201512
  2. TORASEMIDE [Concomitant]
     Active Substance: TORSEMIDE
  3. DAPTOMYCIN. [Suspect]
     Active Substance: DAPTOMYCIN
     Route: 042
  4. LISINOPRIL. [Suspect]
     Active Substance: LISINOPRIL
     Indication: BLOOD PRESSURE ABNORMAL
     Route: 048
  5. BYDUREON [Suspect]
     Active Substance: EXENATIDE
     Indication: BLOOD GLUCOSE ABNORMAL
     Dosage: 10 MG- TAKING IT FOR SUGAR, A SHOT ONCE A WEEK
     Route: 065
  6. VANCOMYCIN [Suspect]
     Active Substance: VANCOMYCIN
     Route: 065
  7. METFORMIN [Suspect]
     Active Substance: METFORMIN HYDROCHLORIDE
     Dosage: 100 MG TWICE A DAY (NON AZ PRODUCT)
     Route: 065
  8. LYRICA [Suspect]
     Active Substance: PREGABALIN
     Route: 065
     Dates: start: 201512
  9. FLUOROURACIL. [Suspect]
     Active Substance: FLUOROURACIL
     Dosage: 5% PUT IT ON EVERY MORNING AND NIGHT
     Route: 065
  10. WARFARIN [Concomitant]
     Active Substance: WARFARIN
     Indication: ANTICOAGULANT THERAPY
  11. GABAPENTIN. [Suspect]
     Active Substance: GABAPENTIN
     Dosage: 400 MG IN THE MORNING AND IN THE AFTERNOON
     Route: 065
  12. BISOPROLOL [Suspect]
     Active Substance: BISOPROLOL
     Indication: BLOOD PRESSURE ABNORMAL
     Route: 065
  13. DULOXETINE. [Suspect]
     Active Substance: DULOXETINE
     Route: 065
  14. HYDROCODONE [Concomitant]
     Active Substance: HYDROCODONE
     Indication: PAIN
     Dosage: 10 MG /325 MCG TAKE OVER FOUR HOURS
  15. SERTRALINE [Suspect]
     Active Substance: SERTRALINE HYDROCHLORIDE
     Route: 065
  16. GABAPENTIN. [Suspect]
     Active Substance: GABAPENTIN
     Route: 065
  17. POTASSIUM [Concomitant]
     Active Substance: POTASSIUM

REACTIONS (9)
  - Localised infection [Unknown]
  - Suicidal behaviour [Unknown]
  - Blister [Unknown]
  - Drug dose omission [Unknown]
  - Adverse event [Unknown]
  - Malaise [Unknown]
  - Intentional product misuse [Unknown]
  - Arthralgia [Unknown]
  - Muscle disorder [Unknown]

NARRATIVE: CASE EVENT DATE: 2015
